FAERS Safety Report 7292488-6 (Version None)
Quarter: 2011Q1

REPORT INFORMATION
  Report Type: 
  Country: None (occurrence: None)
  Receive Date: 20110215
  Receipt Date: 20110204
  Transmission Date: 20110831
  Serious: Yes (Hospitalization)
  Sender: FDA-Public Use
  Company Number: FR-JNJFOC-20110203795

PATIENT
  Sex: Male

DRUGS (6)
  1. SEROPLEX [Concomitant]
     Route: 065
  2. DOGMATIL [Concomitant]
     Route: 065
  3. ACETAMINOPHEN AND TRAMADOL HCL [Suspect]
     Indication: PRODUCT USED FOR UNKNOWN INDICATION
     Route: 048
  4. EQUANIL [Suspect]
     Indication: PRODUCT USED FOR UNKNOWN INDICATION
     Route: 048
  5. ALCOHOL [Suspect]
     Indication: PRODUCT USED FOR UNKNOWN INDICATION
  6. CANNABIS [Concomitant]
     Route: 065

REACTIONS (6)
  - MYDRIASIS [None]
  - MALAISE [None]
  - COMA SCALE ABNORMAL [None]
  - SUICIDE ATTEMPT [None]
  - INTENTIONAL OVERDOSE [None]
  - TACHYCARDIA [None]
